FAERS Safety Report 4407419-3 (Version None)
Quarter: 2004Q3

REPORT INFORMATION
  Report Type: 
  Country: None (occurrence: None)
  Receive Date: 20040723
  Receipt Date: 20040723
  Transmission Date: 20050211
  Serious: Yes (Life-Threatening)
  Sender: FDA-Public Use
  Company Number: None

PATIENT
  Age: 22 Year
  Sex: Male
  Weight: 81.6475 kg

DRUGS (1)
  1. VERELAN PM [Suspect]
     Dosage: ONE 300 MG ORAL DOSE
     Route: 048
     Dates: start: 20040710

REACTIONS (2)
  - ELECTROCARDIOGRAM ABNORMAL [None]
  - HEART RATE INCREASED [None]
